FAERS Safety Report 9782785 (Version 1)
Quarter: 2013Q4

REPORT INFORMATION
  Report Type: Spontaneous
  Country: FR (occurrence: None)
  Receive Date: 20131220
  Receipt Date: 20131220
  Transmission Date: 20140711
  Serious: Yes (Hospitalization)
  Sender: FDA-Public Use
  Company Number: 1970092

PATIENT
  Age: 59 Year
  Sex: Male

DRUGS (13)
  1. (CARBOPLATIN) [Suspect]
     Indication: LARYNGEAL CANCER
     Dosage: 125 MG MILLIGRAM (S), UNKNOWN , INTRAVENOUS
     Route: 042
     Dates: start: 20110726, end: 20110816
  2. (CARBOPLATIN) [Suspect]
     Indication: SQUAMOUS CELL CARCINOMA
     Dosage: 125 MG MILLIGRAM (S), UNKNOWN , INTRAVENOUS
     Route: 042
     Dates: start: 20110726, end: 20110816
  3. FLUOROURACILE [Suspect]
     Indication: LARYNGEAL CANCER
     Dosage: 1100 MG MILLIGRAM (S), UNKNOWN, INTRAVENOUS
     Route: 041
     Dates: start: 20110726, end: 20110818
  4. FLUOROURACILE [Suspect]
     Indication: SQUAMOUS CELL CARCINOMA
     Dosage: 1100 MG MILLIGRAM (S), UNKNOWN, INTRAVENOUS
     Route: 041
     Dates: start: 20110726, end: 20110818
  5. ZOPHREN [Suspect]
     Indication: PRODUCT USED FOR UNKNOWN INDICATION
     Route: 042
     Dates: start: 20110726, end: 20110816
  6. CETUXIMAB [Suspect]
     Indication: LARYNGEAL CANCER
     Dosage: DEPENDS ON CYCLE, UNKNOWN , INTRAVENOUS
     Route: 042
     Dates: start: 20110719, end: 20110816
  7. CETUXIMAB [Suspect]
     Indication: SQUAMOUS CELL CARCINOMA
     Dosage: DEPENDS ON CYCLE, UNKNOWN , INTRAVENOUS
     Route: 042
     Dates: start: 20110719, end: 20110816
  8. (DURAGESIC) [Concomitant]
  9. (FRESUBIN) [Concomitant]
  10. (NUTRIENTS NOS) [Concomitant]
  11. (SOLUMEDROL) [Concomitant]
  12. (POLARAMINE) [Concomitant]
  13. (RANITIDINE) [Concomitant]

REACTIONS (2)
  - Ventricular tachycardia [None]
  - Myocarditis [None]
